FAERS Safety Report 4931656-2 (Version None)
Quarter: 2006Q1

REPORT INFORMATION
  Report Type: 
  Country: None (occurrence: None)
  Receive Date: 20060303
  Receipt Date: 20051213
  Transmission Date: 20060701
  Serious: Yes (Other)
  Sender: FDA-Public Use
  Company Number: US-BRISTOL-MYERS SQUIBB COMPANY-13213194

PATIENT
  Age: 72 Year
  Sex: Female
  Weight: 69 kg

DRUGS (8)
  1. ERBITUX [Suspect]
     Indication: COLON CANCER METASTATIC
     Dosage: LOADING DOSE 700 MG ON 12-OCT-2005. HELD SINCE 20-NOV-2005. RESTARTED ON 13-DEC-2005.
     Route: 042
     Dates: start: 20051115, end: 20051115
  2. ANZEMET [Concomitant]
     Indication: PREMEDICATION
     Dosage: CAMPTOSAR PREMEDICATION.
     Route: 042
     Dates: start: 20050101, end: 20050101
  3. BENADRYL [Concomitant]
     Indication: PREMEDICATION
     Route: 042
     Dates: start: 20051115, end: 20051115
  4. CALCIUM SUPPLEMENT [Concomitant]
  5. CAMPTOSAR [Concomitant]
     Route: 042
     Dates: start: 20050101, end: 20050101
  6. DECADRON SRC [Concomitant]
     Indication: PREMEDICATION
     Dosage: CAMPTOSAR PREMEDICATION.
     Route: 042
     Dates: start: 20050101, end: 20050101
  7. FOSAMAX [Concomitant]
  8. VITAMINS [Concomitant]

REACTIONS (2)
  - RASH GENERALISED [None]
  - URTICARIA [None]
